FAERS Safety Report 4406227-7 (Version None)
Quarter: 2004Q3

REPORT INFORMATION
  Report Type: 
  Country: None (occurrence: None)
  Receive Date: 20040723
  Receipt Date: 20040525
  Transmission Date: 20050211
  Serious: No
  Sender: FDA-Public Use
  Company Number: US-GLAXOSMITHKLINE-A0512058A

PATIENT
  Age: 84 Year
  Sex: Male

DRUGS (11)
  1. AVANDIA [Suspect]
     Dosage: 8MG PER DAY
     Route: 048
     Dates: start: 20040415
  2. GLYBURIDE [Concomitant]
  3. ATENOLOL [Concomitant]
  4. TRENTAL [Concomitant]
  5. ZOCOR [Concomitant]
  6. RISPERDAL [Concomitant]
  7. LANTUS [Concomitant]
  8. ADVAIR DISKUS 100/50 [Concomitant]
  9. ALBUTEROL [Concomitant]
  10. ECOTRIN [Concomitant]
  11. LASIX [Concomitant]

REACTIONS (2)
  - OEDEMA PERIPHERAL [None]
  - RENAL IMPAIRMENT [None]
